FAERS Safety Report 8306992-2 (Version None)
Quarter: 2012Q2

REPORT INFORMATION
  Report Type: 
  Country: None (occurrence: None)
  Receive Date: 20120419
  Receipt Date: 20120417
  Transmission Date: 20120825
  Serious: Yes (Other)
  Sender: FDA-Public Use
  Company Number: ADR-2010-8584

PATIENT
  Sex: Male

DRUGS (1)
  1. LIORESAL [Suspect]
     Indication: MUSCLE SPASTICITY
     Dosage: 379.3 MCG, DAILY, INTRA
     Route: 037

REACTIONS (3)
  - MUSCULOSKELETAL STIFFNESS [None]
  - PRURITUS [None]
  - DRUG WITHDRAWAL SYNDROME [None]
